FAERS Safety Report 23514603 (Version 3)
Quarter: 2024Q1

REPORT INFORMATION
  Report Type: Spontaneous
  Country: PL (occurrence: PL)
  Receive Date: 20240212
  Receipt Date: 20240305
  Transmission Date: 20240409
  Serious: Yes (Other)
  Sender: FDA-Public Use
  Company Number: PL-002147023-NVSC2024PL027217

PATIENT
  Age: 38 Year
  Sex: Female

DRUGS (1)
  1. INTERFERON BETA-1B [Suspect]
     Active Substance: INTERFERON BETA-1B
     Indication: Relapsing-remitting multiple sclerosis
     Dosage: UNK
     Route: 065
     Dates: start: 201812

REACTIONS (7)
  - Relapsing-remitting multiple sclerosis [Recovered/Resolved]
  - Demyelination [Recovered/Resolved]
  - Monoparesis [Recovered/Resolved]
  - Ataxia [Recovered/Resolved]
  - Facial paralysis [Recovered/Resolved]
  - Expanded disability status scale score increased [Recovered/Resolved]
  - Therapeutic product effect incomplete [Unknown]

NARRATIVE: CASE EVENT DATE: 20200801
